FAERS Safety Report 16150388 (Version 1)
Quarter: 2019Q2

REPORT INFORMATION
  Report Type: Spontaneous
  Country: TR (occurrence: TR)
  Receive Date: 20190403
  Receipt Date: 20190403
  Transmission Date: 20190711
  Serious: Yes (Other)
  Sender: FDA-Public Use
  Company Number: TR-MACLEODS PHARMACEUTICALS US LTD-MAC2019020709

PATIENT

DRUGS (2)
  1. TRIAMCINOLONE [Suspect]
     Active Substance: TRIAMCINOLONE
     Indication: ALOPECIA AREATA
     Dosage: 1 ML OF TRIAMCINOLONE WAS INJECTED IN THE SECOND VISIT.
     Route: 058
  2. TRIAMCINOLONE [Suspect]
     Active Substance: TRIAMCINOLONE
     Dosage: UNK, DOSE UNKNOWN AT FIRST TIME
     Route: 058

REACTIONS (6)
  - Retinal ischaemia [Recovered/Resolved]
  - Retinal artery occlusion [Recovered/Resolved]
  - Ischaemia [Recovered/Resolved]
  - Retinal haemorrhage [Recovered/Resolved]
  - Retinal degeneration [Not Recovered/Not Resolved]
  - Retinal artery embolism [Recovered/Resolved]
